FAERS Safety Report 16705589 (Version 1)
Quarter: 2019Q4

REPORT INFORMATION
  Report Type: Spontaneous
  Country: US (occurrence: US)
  Receive Date: 20190814
  Receipt Date: 20190814
  Transmission Date: 20200122
  Serious: Yes (Hospitalization)
  Sender: FDA-Public Use
  Company Number: None

PATIENT
  Age: 16 Year
  Sex: Male

DRUGS (5)
  1. ORKAMBI [Suspect]
     Active Substance: IVACAFTOR\LUMACAFTOR
     Indication: CYSTIC FIBROSIS
     Route: 048
     Dates: start: 20171114
  2. TOBRAMYCIN 300MG/5ML [Concomitant]
     Active Substance: TOBRAMYCIN
     Dates: start: 20190622, end: 20190720
  3. BACTRIM 800/400MG [Concomitant]
     Dates: start: 20190628, end: 20190712
  4. LEVOFLOXACIN 500MG TABLETS [Concomitant]
     Active Substance: LEVOFLOXACIN
     Dates: start: 20190722, end: 20190805
  5. AQUADEKS CHEWABLE TABLETS [Concomitant]
     Active Substance: VITAMINS
     Dates: start: 20181011

REACTIONS (1)
  - Pneumonia [None]

NARRATIVE: CASE EVENT DATE: 20190730
